FAERS Safety Report 4967335-5 (Version None)
Quarter: 2006Q2

REPORT INFORMATION
  Report Type: 
  Country: None (occurrence: None)
  Receive Date: 20060404
  Receipt Date: 20060327
  Transmission Date: 20061013
  Serious: Yes (Life-Threatening)
  Sender: FDA-Public Use
  Company Number: 2006-139885-NL

PATIENT
  Sex: Female

DRUGS (2)
  1. MENOTROPINS [Suspect]
     Dosage: DF
  2. CLOMIPHENE [Concomitant]

REACTIONS (5)
  - APGAR SCORE LOW [None]
  - BRONCHOPULMONARY DYSPLASIA [None]
  - CAESAREAN SECTION [None]
  - DRUG EXPOSURE DURING PREGNANCY [None]
  - PREMATURE BABY [None]
